FAERS Safety Report 25673804 (Version 1)
Quarter: 2025Q3

REPORT INFORMATION
  Report Type: Spontaneous
  Country: BR (occurrence: BR)
  Receive Date: 20250813
  Receipt Date: 20250813
  Transmission Date: 20251021
  Serious: Yes (Other)
  Sender: BEIGENE
  Company Number: BR-BEIGENE-BGN-2025-013296

PATIENT
  Age: 62 Year

DRUGS (4)
  1. BRUKINSA [Suspect]
     Active Substance: ZANUBRUTINIB
     Indication: Chronic lymphocytic leukaemia
  2. BRUKINSA [Suspect]
     Active Substance: ZANUBRUTINIB
  3. LOSARTAN [Concomitant]
     Active Substance: LOSARTAN
  4. Daflon [Concomitant]

REACTIONS (7)
  - Mastoiditis [Unknown]
  - Thrombocytopenia [Unknown]
  - Pancytopenia [Unknown]
  - Gastrointestinal toxicity [Unknown]
  - Ear infection [Unknown]
  - General physical health deterioration [Unknown]
  - Anaemia [Unknown]
